FAERS Safety Report 10403632 (Version 2)
Quarter: 2014Q4

REPORT INFORMATION
  Report Type: Spontaneous
  Country: FR (occurrence: FR)
  Receive Date: 20140822
  Receipt Date: 20141008
  Transmission Date: 20150528
  Serious: Yes (Hospitalization)
  Sender: FDA-Public Use
  Company Number: FR-PFIZER INC-2014233738

PATIENT
  Sex: Female

DRUGS (3)
  1. PROZAC [Concomitant]
     Active Substance: FLUOXETINE HYDROCHLORIDE
     Dosage: 20 MG, ONCE A DAY (IN THE MORNING)
  2. IMOVANE [Concomitant]
     Active Substance: ZOPICLONE
     Dosage: 7.5 MG, ONCE A DAY (IN THE EVENING)
  3. ALPRAZOLAM. [Suspect]
     Active Substance: ALPRAZOLAM
     Dosage: UNK

REACTIONS (7)
  - Dry mouth [Unknown]
  - Tremor [Unknown]
  - Fear [Unknown]
  - Vertigo [Unknown]
  - Hypotension [Unknown]
  - Dyspnoea [Unknown]
  - Malaise [Unknown]
